FAERS Safety Report 23461555 (Version 1)
Quarter: 2024Q1

REPORT INFORMATION
  Report Type: Spontaneous
  Country: US (occurrence: None)
  Receive Date: 20240130
  Receipt Date: 20240130
  Transmission Date: 20240409
  Serious: Yes (Death)
  Sender: FDA-Public Use
  Company Number: None

PATIENT
  Age: 33 Year
  Sex: Male

DRUGS (15)
  1. TACROLIMUS [Suspect]
     Active Substance: TACROLIMUS
     Dosage: FREQUENCY : TWICE A DAY;?
     Route: 048
     Dates: start: 20231107
  2. TACROLIMUS [Suspect]
     Active Substance: TACROLIMUS
     Dosage: FREQUENCY : TWICE A DAY;?
     Route: 048
     Dates: start: 20231107
  3. ACYCLOVIR [Concomitant]
     Active Substance: ACYCLOVIR
  4. ATOVAQUONE 400MG [Concomitant]
  5. CYCLOSPORINE 100MG [Concomitant]
  6. CYCLOSPORINE 25MG [Concomitant]
  7. GABAPENTIN 100MG [Concomitant]
  8. LEVOFLOXACIN 500MG [Concomitant]
  9. METFORMIN 500MG [Concomitant]
  10. MG PLUS PROTEIN 133MG [Concomitant]
  11. ONDANSETERON 8MG [Concomitant]
  12. URSODIOL 300MG [Concomitant]
  13. VORICONAZOLE [Concomitant]
  14. FOLIC ACID [Concomitant]
  15. JADENNU 180MG [Concomitant]

REACTIONS (1)
  - Death [None]

NARRATIVE: CASE EVENT DATE: 20240124
